FAERS Safety Report 14403497 (Version 2)
Quarter: 2018Q2

REPORT INFORMATION
  Report Type: Spontaneous
  Country: DE (occurrence: DE)
  Receive Date: 20180117
  Receipt Date: 20180426
  Transmission Date: 20180711
  Serious: No
  Sender: FDA-Public Use
  Company Number: DE-ALEXION PHARMACEUTICALS INC.-A201800330

PATIENT
  Sex: Female

DRUGS (4)
  1. TACROLIMUS. [Concomitant]
     Active Substance: TACROLIMUS
     Indication: PRODUCT USED FOR UNKNOWN INDICATION
     Dosage: UNK
     Route: 065
  2. SOLIRIS [Suspect]
     Active Substance: ECULIZUMAB
     Indication: ATYPICAL HAEMOLYTIC URAEMIC SYNDROME
     Dosage: 900 MG, WEEKLY
     Route: 065
     Dates: start: 201710
  3. SOLIRIS [Suspect]
     Active Substance: ECULIZUMAB
     Dosage: 600 MG, ONCE WEEKLY
     Route: 065
     Dates: start: 201803
  4. SOLIRIS [Suspect]
     Active Substance: ECULIZUMAB
     Dosage: 600 MG, TWICE A WEEK
     Route: 065
     Dates: start: 201712

REACTIONS (8)
  - Blood lactate dehydrogenase increased [Unknown]
  - Platelet count abnormal [Unknown]
  - Inappropriate schedule of drug administration [Unknown]
  - Proteinuria [Unknown]
  - Incorrect dose administered [Unknown]
  - Red blood cell schistocytes present [Unknown]
  - Total complement activity increased [Unknown]
  - Infection [Unknown]

NARRATIVE: CASE EVENT DATE: 201712
